FAERS Safety Report 5964804-6 (Version None)
Quarter: 2008Q4

REPORT INFORMATION
  Report Type: 
  Country: None (occurrence: None)
  Receive Date: 20081125
  Receipt Date: 20080417
  Transmission Date: 20090506
  Serious: No
  Sender: FDA-Public Use
  Company Number: US-BAYER-200811782BCC

PATIENT

DRUGS (2)
  1. MIDOL (FORMULATION NOT SPECIFIED) [Suspect]
     Indication: DRUG USE FOR UNKNOWN INDICATION
     Dosage: UNIT DOSE: 220 MG
  2. ALCOHOL [Suspect]

REACTIONS (1)
  - NO ADVERSE EVENT [None]
